FAERS Safety Report 8308599 (Version 2)
Quarter: 2025Q3

REPORT INFORMATION
  Report Type: Spontaneous
  Country: JP (occurrence: JP)
  Receive Date: 20111222
  Receipt Date: 20250829
  Transmission Date: 20251021
  Serious: Yes (Hospitalization)
  Sender: NOVARTIS
  Company Number: PHHY2011JP109274

PATIENT
  Age: 49 Year
  Sex: Female

DRUGS (1)
  1. CARBAMAZEPINE [Suspect]
     Active Substance: CARBAMAZEPINE
     Indication: Epilepsy
     Dosage: 400 MG, QD
     Route: 065

REACTIONS (8)
  - Hypogammaglobulinaemia [Recovered/Resolved]
  - Organising pneumonia [Recovering/Resolving]
  - Rales [Recovered/Resolved]
  - Productive cough [Recovered/Resolved]
  - Dyspnoea exertional [Recovered/Resolved]
  - Body temperature increased [Recovered/Resolved]
  - Pulmonary fibrosis [Recovering/Resolving]
  - Obstructive airways disorder [Recovered/Resolved]
